FAERS Safety Report 5423003-7 (Version None)
Quarter: 2007Q3

REPORT INFORMATION
  Report Type: 
  Country: None (occurrence: None)
  Receive Date: 20070822
  Receipt Date: 20070810
  Transmission Date: 20080115
  Serious: Yes (Other)
  Sender: FDA-Public Use
  Company Number: GB-PFIZER INC-2007063154

PATIENT
  Age: 38 Year
  Sex: Female
  Weight: 64 kg

DRUGS (1)
  1. CHAMPIX [Suspect]
     Indication: SMOKING CESSATION THERAPY
     Route: 048
     Dates: start: 20070717, end: 20070719

REACTIONS (11)
  - ABDOMINAL DISTENSION [None]
  - ARTHRALGIA [None]
  - BLINDNESS TRANSIENT [None]
  - FEELING COLD [None]
  - HOT FLUSH [None]
  - LOCAL SWELLING [None]
  - LYMPHADENOPATHY [None]
  - NECK PAIN [None]
  - PAIN OF SKIN [None]
  - PHOTOPSIA [None]
  - RASH [None]
